FAERS Safety Report 8003803-X (Version None)
Quarter: 2011Q4

REPORT INFORMATION
  Report Type: 
  Country: None (occurrence: None)
  Receive Date: 20111222
  Receipt Date: 20111215
  Transmission Date: 20120403
  Serious: Yes (Other)
  Sender: FDA-Public Use
  Company Number: US-AMGEN-USASP2011067222

PATIENT
  Age: 52 Year
  Sex: Female

DRUGS (1)
  1. XGEVA [Suspect]
     Indication: BREAST CANCER METASTATIC
     Dosage: 120 MG, Q4WK

REACTIONS (7)
  - POLLAKIURIA [None]
  - DIZZINESS [None]
  - PALPITATIONS [None]
  - BONE PAIN [None]
  - CHILLS [None]
  - NAUSEA [None]
  - PYREXIA [None]
